FAERS Safety Report 24936433 (Version 7)
Quarter: 2025Q4

REPORT INFORMATION
  Report Type: Other
  Country: US (occurrence: US)
  Receive Date: 20250206
  Receipt Date: 20251031
  Transmission Date: 20260117
  Serious: No
  Sender: TRAVERE THERAPEUTICS
  Company Number: US-TRAVERE-2025TVT00117

PATIENT
  Age: 64 Year
  Sex: Female

DRUGS (3)
  1. FILSPARI [Suspect]
     Active Substance: SPARSENTAN
     Indication: IgA nephropathy
     Dosage: 1 TABLET ONCE DAILY
     Route: 048
     Dates: start: 20250126
  2. FILSPARI [Suspect]
     Active Substance: SPARSENTAN
     Route: 048
     Dates: start: 20250206
  3. CARVEDILOL [Concomitant]
     Active Substance: CARVEDILOL

REACTIONS (9)
  - Anxiety [Unknown]
  - Fatigue [None]
  - Pollakiuria [Unknown]
  - Myalgia [Unknown]
  - Neuralgia [Unknown]
  - Muscle spasms [Unknown]
  - Swelling [Unknown]
  - Illness [Unknown]
  - Product administration error [Unknown]
